FAERS Safety Report 12509660 (Version 1)
Quarter: 2016Q2

REPORT INFORMATION
  Report Type: Spontaneous
  Country: US (occurrence: US)
  Receive Date: 20160629
  Receipt Date: 20160629
  Transmission Date: 20160815
  Serious: Yes (Other)
  Sender: FDA-Public Use
  Company Number: US-UNITED THERAPEUTICS-UNT-2016-010233

PATIENT
  Sex: Female

DRUGS (1)
  1. TYVASO [Suspect]
     Active Substance: TREPROSTINIL
     Indication: PULMONARY ARTERIAL HYPERTENSION
     Dosage: 72 MG, QID
     Dates: start: 20130514

REACTIONS (3)
  - Anaemia [Unknown]
  - Product use issue [Unknown]
  - Fluid overload [Unknown]

NARRATIVE: CASE EVENT DATE: 20160601
